FAERS Safety Report 10445498 (Version 2)
Quarter: 2015Q3

REPORT INFORMATION
  Report Type: Spontaneous
  Country: US (occurrence: US)
  Receive Date: 20140910
  Receipt Date: 20150817
  Transmission Date: 20151125
  Serious: Yes (Death, Hospitalization)
  Sender: FDA-Public Use
  Company Number: US-JNJFOC-20140907744

PATIENT
  Age: 61 Year
  Sex: Male

DRUGS (6)
  1. KCL [Concomitant]
     Active Substance: POTASSIUM CHLORIDE
  2. PROTONIX [Concomitant]
     Active Substance: PANTOPRAZOLE SODIUM
  3. ZOFRAN [Concomitant]
     Active Substance: ONDANSETRON HYDROCHLORIDE
     Dosage: BID, PRN
  4. LASIX [Concomitant]
     Active Substance: FUROSEMIDE
  5. PREDNISONE. [Concomitant]
     Active Substance: PREDNISONE
  6. IMBRUVICA [Suspect]
     Active Substance: IBRUTINIB
     Indication: CHRONIC LYMPHOCYTIC LEUKAEMIA
     Route: 048
     Dates: start: 201403, end: 20140820

REACTIONS (4)
  - Splenomegaly [Unknown]
  - Renal failure [Fatal]
  - Disease progression [Fatal]
  - White blood cell count increased [Unknown]

NARRATIVE: CASE EVENT DATE: 201408
